FAERS Safety Report 11001843 (Version 3)
Quarter: 2015Q2

REPORT INFORMATION
  Report Type: Spontaneous
  Country: US (occurrence: US)
  Receive Date: 20150408
  Receipt Date: 20150423
  Transmission Date: 20150821
  Serious: Yes (Hospitalization)
  Sender: FDA-Public Use
  Company Number: US-ROCHE-1521035

PATIENT
  Age: 56 Year
  Sex: Female
  Weight: 56.7 kg

DRUGS (35)
  1. BACTRIM [Suspect]
     Active Substance: SULFAMETHOXAZOLE\TRIMETHOPRIM
     Indication: PRODUCT USED FOR UNKNOWN INDICATION
     Route: 065
  2. EPIRUBICIN [Suspect]
     Active Substance: EPIRUBICIN
     Indication: BREAST CANCER
     Route: 042
     Dates: start: 20150209
  3. COMPAZINE [Concomitant]
     Active Substance: PROCHLORPERAZINE MALEATE
     Route: 048
  4. CLARITIN [Concomitant]
     Active Substance: LORATADINE
     Route: 065
  5. PERJETA [Suspect]
     Active Substance: PERTUZUMAB
     Indication: BREAST CANCER
     Route: 065
     Dates: start: 20141110
  6. HERCEPTIN [Suspect]
     Active Substance: TRASTUZUMAB
     Route: 042
     Dates: start: 20150323
  7. CYTOXAN [Suspect]
     Active Substance: CYCLOPHOSPHAMIDE
     Route: 042
     Dates: start: 20150323
  8. EPIRUBICIN [Suspect]
     Active Substance: EPIRUBICIN
     Route: 042
     Dates: start: 20150323
  9. VITAMIN B6 [Concomitant]
     Active Substance: PYRIDOXINE HYDROCHLORIDE
     Route: 048
  10. SODIUM CHLORIDE. [Concomitant]
     Active Substance: SODIUM CHLORIDE
     Dosage: 0.65%
     Route: 065
  11. ENJUVIA [Concomitant]
     Active Substance: ESTROGENS, CONJUGATED SYNTHETIC B
     Route: 065
  12. VALTREX [Concomitant]
     Active Substance: VALACYCLOVIR HYDROCHLORIDE
  13. ZOSYN [Concomitant]
     Active Substance: PIPERACILLIN SODIUM\TAZOBACTAM SODIUM
     Route: 042
     Dates: start: 20150407, end: 20150409
  14. OXYCODONE [Concomitant]
     Active Substance: OXYCODONE
     Route: 048
     Dates: start: 20150406
  15. FLUOROURACIL. [Suspect]
     Active Substance: FLUOROURACIL
     Indication: BREAST CANCER
     Route: 042
     Dates: start: 20150209, end: 20150323
  16. GRAPE SEED EXTRACT [Concomitant]
     Active Substance: GRAPE SEED EXTRACT
     Dosage: 1 TAB ORAL DAILY
     Route: 048
  17. TRIAMCINOLONE [Concomitant]
     Active Substance: TRIAMCINOLONE
     Route: 061
  18. NEULASTA [Concomitant]
     Active Substance: PEGFILGRASTIM
     Route: 065
  19. HERCEPTIN [Suspect]
     Active Substance: TRASTUZUMAB
     Indication: BREAST CANCER
     Route: 042
     Dates: start: 20150209
  20. ADRUCIL [Suspect]
     Active Substance: FLUOROURACIL
     Indication: BREAST CANCER
     Route: 042
     Dates: start: 20150209
  21. IMODIUM [Concomitant]
     Active Substance: LOPERAMIDE HYDROCHLORIDE
     Route: 048
  22. ACETAMINOPHEN. [Concomitant]
     Active Substance: ACETAMINOPHEN
     Route: 048
  23. AUGMENTIN [Concomitant]
     Active Substance: AMOXICILLIN\CLAVULANATE POTASSIUM
  24. EMLA [Concomitant]
     Active Substance: LIDOCAINE\PRILOCAINE
  25. CYTOXAN [Suspect]
     Active Substance: CYCLOPHOSPHAMIDE
     Indication: BREAST CANCER
     Route: 042
     Dates: start: 20150209
  26. ADRUCIL [Suspect]
     Active Substance: FLUOROURACIL
     Route: 042
     Dates: start: 20150323
  27. TYLENOL [Concomitant]
     Active Substance: ACETAMINOPHEN
  28. KEFLEX [Concomitant]
     Active Substance: CEPHALEXIN
  29. BIOTIN [Concomitant]
     Active Substance: BIOTIN
     Dosage: MOUTH ORAL RINSE?AS NEEDED
     Route: 048
  30. DECADRON [Concomitant]
     Active Substance: DEXAMETHASONE
  31. COMPAZINE [Concomitant]
     Active Substance: PROCHLORPERAZINE MALEATE
     Route: 065
  32. PROMETRIUM [Concomitant]
     Active Substance: PROGESTERONE
     Route: 065
  33. PROMETRIUM [Concomitant]
     Active Substance: PROGESTERONE
  34. VITAMIN D3 [Concomitant]
     Active Substance: CHOLECALCIFEROL
  35. VITAMIN B6 [Concomitant]
     Active Substance: PYRIDOXINE HYDROCHLORIDE
     Route: 065

REACTIONS (6)
  - Tinea pedis [Unknown]
  - Pyrexia [Unknown]
  - Nail infection [Recovering/Resolving]
  - Cellulitis [Unknown]
  - Hypersensitivity [Recovering/Resolving]
  - Rash erythematous [Unknown]

NARRATIVE: CASE EVENT DATE: 20150112
